FAERS Safety Report 21303341 (Version 1)
Quarter: 2022Q3

REPORT INFORMATION
  Report Type: Spontaneous
  Country: TH (occurrence: TH)
  Receive Date: 20220907
  Receipt Date: 20220907
  Transmission Date: 20221027
  Serious: Yes (Other)
  Sender: FDA-Public Use
  Company Number: TH-002147023-NVSC2022TH190550

PATIENT

DRUGS (1)
  1. RUXOLITINIB [Suspect]
     Active Substance: RUXOLITINIB
     Indication: Primary myelofibrosis
     Dosage: 15 MG, BID
     Route: 065

REACTIONS (4)
  - Glucose-6-phosphate dehydrogenase deficiency [Unknown]
  - Haematocrit decreased [Unknown]
  - Haemolysis [Unknown]
  - Pallor [Unknown]
